FAERS Safety Report 16212316 (Version 1)
Quarter: 2019Q2

REPORT INFORMATION
  Report Type: Spontaneous
  Country: US (occurrence: US)
  Receive Date: 20190418
  Receipt Date: 20190418
  Transmission Date: 20190711
  Serious: No
  Sender: FDA-Public Use
  Company Number: US-PFIZER INC-2019160615

PATIENT
  Age: 64 Year
  Weight: 88.45 kg

DRUGS (1)
  1. LIDOCAINE HCL [Suspect]
     Active Substance: LIDOCAINE HYDROCHLORIDE
     Indication: PAIN MANAGEMENT
     Dosage: 100 MG, UNK, [IV 20/25ML VIAL]
     Route: 042

REACTIONS (2)
  - Paraesthesia oral [Recovered/Resolved]
  - Agitation [Recovered/Resolved]

NARRATIVE: CASE EVENT DATE: 20190318
